FAERS Safety Report 18899513 (Version 2)
Quarter: 2021Q3

REPORT INFORMATION
  Report Type: Spontaneous
  Country: US (occurrence: US)
  Receive Date: 20210216
  Receipt Date: 20210913
  Transmission Date: 20211014
  Serious: Yes (Other)
  Sender: FDA-Public Use
  Company Number: US-GILEAD-2021-0515736

PATIENT
  Sex: Female
  Weight: 71.21 kg

DRUGS (49)
  1. ASPIRIN [ACETYLSALICYLIC ACID] [Concomitant]
     Active Substance: ASPIRIN
  2. VITAMIN D [VITAMIN D NOS] [Concomitant]
     Active Substance: VITAMIN D NOS
  3. LEUCOVORIN [FOLINIC ACID] [Concomitant]
     Active Substance: LEUCOVORIN
  4. VIREAD [Suspect]
     Active Substance: TENOFOVIR DISOPROXIL FUMARATE
     Indication: HIV INFECTION
     Dosage: UNK
     Route: 048
     Dates: start: 2001, end: 201412
  5. NORVIR [Concomitant]
     Active Substance: RITONAVIR
  6. AMLODIPINE [Concomitant]
     Active Substance: AMLODIPINE BESYLATE
  7. PRAVASTATIN. [Concomitant]
     Active Substance: PRAVASTATIN
  8. CYCLOBENZAPRINE. [Concomitant]
     Active Substance: CYCLOBENZAPRINE
  9. FERROUS SULFATE. [Concomitant]
     Active Substance: FERROUS SULFATE
  10. PROCRIT [Concomitant]
     Active Substance: ERYTHROPOIETIN
  11. MELOXICAM. [Concomitant]
     Active Substance: MELOXICAM
  12. HYDRALAZINE [Concomitant]
     Active Substance: HYDRALAZINE HYDROCHLORIDE
  13. MECLIZINE HCL [Concomitant]
     Active Substance: MECLIZINE HYDROCHLORIDE
  14. ATORVASTATIN [Concomitant]
     Active Substance: ATORVASTATIN
  15. EPIVIR [Concomitant]
     Active Substance: LAMIVUDINE
  16. NOVOLOG [Concomitant]
     Active Substance: INSULIN ASPART
  17. DIAZEPAM. [Concomitant]
     Active Substance: DIAZEPAM
  18. OMEPRAZOLE. [Concomitant]
     Active Substance: OMEPRAZOLE
  19. DARAPRIM [Concomitant]
     Active Substance: PYRIMETHAMINE
  20. ALLOPURINOL. [Concomitant]
     Active Substance: ALLOPURINOL
  21. CARAFATE [Concomitant]
     Active Substance: SUCRALFATE
  22. TRAZODONE [Concomitant]
     Active Substance: TRAZODONE HYDROCHLORIDE
  23. VIRACEPT [Concomitant]
     Active Substance: NELFINAVIR MESYLATE
  24. CLONIDINE. [Concomitant]
     Active Substance: CLONIDINE
  25. HYDROCHLOROTHIAZIDE. [Concomitant]
     Active Substance: HYDROCHLOROTHIAZIDE
  26. DOCUSATE [Concomitant]
     Active Substance: DOCUSATE
  27. ZOLPIDEM [Concomitant]
     Active Substance: ZOLPIDEM TARTRATE
  28. REPAGLINIDE. [Concomitant]
     Active Substance: REPAGLINIDE
  29. LINZESS [Concomitant]
     Active Substance: LINACLOTIDE
  30. CRIXIVAN [Concomitant]
     Active Substance: INDINAVIR SULFATE
  31. LEVEMIR [Concomitant]
     Active Substance: INSULIN DETEMIR
  32. METOPROLOL. [Concomitant]
     Active Substance: METOPROLOL
  33. CALCITROL [CALCITRIOL] [Concomitant]
     Active Substance: CALCITRIOL
  34. FUROSEMIDE. [Concomitant]
     Active Substance: FUROSEMIDE
  35. NIFEDIPINE. [Concomitant]
     Active Substance: NIFEDIPINE
  36. VIREAD [Suspect]
     Active Substance: TENOFOVIR DISOPROXIL FUMARATE
     Dosage: UNK
     Route: 048
     Dates: start: 2001, end: 2018
  37. INSULIN [Concomitant]
     Active Substance: INSULIN NOS
  38. FENOFIBRATE. [Concomitant]
     Active Substance: FENOFIBRATE
  39. PREDNISONE. [Concomitant]
     Active Substance: PREDNISONE
  40. GEMFIBROZIL. [Concomitant]
     Active Substance: GEMFIBROZIL
  41. SULFAMETHOXAZOLE [Concomitant]
     Active Substance: SULFAMETHOXAZOLE
  42. BENZONATATE. [Concomitant]
     Active Substance: BENZONATATE
  43. JULUCA [Concomitant]
     Active Substance: DOLUTEGRAVIR SODIUM\RILPIVIRINE HYDROCHLORIDE
  44. LEXIVA [Concomitant]
     Active Substance: FOSAMPRENAVIR CALCIUM
  45. LOSARTAN. [Concomitant]
     Active Substance: LOSARTAN
  46. PROPRANOL [Concomitant]
     Active Substance: PROPRANOLOL HYDROCHLORIDE
  47. REGLAN [Concomitant]
     Active Substance: METOCLOPRAMIDE HYDROCHLORIDE
  48. LABETALOL [Concomitant]
     Active Substance: LABETALOL\LABETALOL HYDROCHLORIDE
  49. LEVOTHYROXINE. [Concomitant]
     Active Substance: LEVOTHYROXINE

REACTIONS (6)
  - Anhedonia [Not Recovered/Not Resolved]
  - Anxiety [Not Recovered/Not Resolved]
  - Chronic kidney disease [Not Recovered/Not Resolved]
  - Pain [Not Recovered/Not Resolved]
  - Nephrogenic anaemia [Not Recovered/Not Resolved]
  - Emotional distress [Not Recovered/Not Resolved]

NARRATIVE: CASE EVENT DATE: 2008
